FAERS Safety Report 4627063-2 (Version None)
Quarter: 2005Q1

REPORT INFORMATION
  Report Type: 
  Country: None (occurrence: None)
  Receive Date: 20050331
  Receipt Date: 20050323
  Transmission Date: 20050727
  Serious: Yes (Other)
  Sender: FDA-Public Use
  Company Number: 2005AL001154

PATIENT
  Age: 39 Year
  Sex: Female
  Weight: 89.8122 kg

DRUGS (3)
  1. KADIAN [Suspect]
     Indication: PAIN
     Dosage: 600 MG; Q8H; PO
     Route: 048
     Dates: start: 20031201, end: 20041201
  2. ACTIQ [Concomitant]
  3. CONCERTA [Concomitant]

REACTIONS (3)
  - ANAPHYLACTIC REACTION [None]
  - MUSCLE SPASMS [None]
  - MUSCULOSKELETAL STIFFNESS [None]
